FAERS Safety Report 7487235-9 (Version None)
Quarter: 2011Q2

REPORT INFORMATION
  Report Type: 
  Country: None (occurrence: None)
  Receive Date: 20110510
  Receipt Date: 20110426
  Transmission Date: 20111010
  Serious: Yes (Other)
  Sender: FDA-Public Use
  Company Number: IPC201104-000794

PATIENT

DRUGS (2)
  1. METOCLOPRAMIDE HYDROCHLORIDE [Suspect]
     Dosage: ORAL
     Route: 048
  2. REGLAN [Suspect]
     Dosage: ORAL
     Route: 048

REACTIONS (5)
  - TARDIVE DYSKINESIA [None]
  - NERVOUS SYSTEM DISORDER [None]
  - DYSTONIA [None]
  - MOVEMENT DISORDER [None]
  - AKATHISIA [None]
